FAERS Safety Report 6719944-0 (Version None)
Quarter: 2010Q2

REPORT INFORMATION
  Report Type: 
  Country: None (occurrence: None)
  Receive Date: 20100511
  Receipt Date: 20100511
  Transmission Date: 20101027
  Serious: Yes (Hospitalization)
  Sender: FDA-Public Use
  Company Number: None

PATIENT
  Sex: Male
  Weight: 11.7935 kg

DRUGS (2)
  1. CHILDREN'S MOTRIN [Suspect]
     Indication: PYREXIA
     Dosage: 5 ML 6-8 HOURS ORAL
     Route: 048
     Dates: start: 20100401, end: 20100407
  2. CHILDREN'S TYLENOL 160MG PER 5 ML MCNEIL PPC [Suspect]
     Indication: PYREXIA
     Dosage: 5 ML  4-6 HOURS ORAL
     Route: 048
     Dates: start: 20100401, end: 20100407

REACTIONS (6)
  - ABDOMINAL PAIN UPPER [None]
  - HYPOPHAGIA [None]
  - PRODUCT QUALITY ISSUE [None]
  - PYREXIA [None]
  - SOMNOLENCE [None]
  - WEIGHT DECREASED [None]
